FAERS Safety Report 4679467-X (Version None)
Quarter: 2005Q2

REPORT INFORMATION
  Report Type: 
  Country: None (occurrence: None)
  Receive Date: 20050311
  Receipt Date: 20050311
  Transmission Date: 20051028
  Serious: Yes (Other)
  Sender: FDA-Public Use
  Company Number: None

PATIENT
  Sex: Male
  Weight: 219 kg

DRUGS (1)
  1. GLYCOLAX [Suspect]
     Indication: CONSTIPATION
     Dosage: 1/2 CAPFUL DAILY MIXED W/ WATER PER NG TUBE

REACTIONS (3)
  - CONSTIPATION [None]
  - DIARRHOEA [None]
  - THERAPEUTIC RESPONSE UNEXPECTED WITH DRUG SUBSTITUTION [None]
